FAERS Safety Report 24788810 (Version 1)
Quarter: 2024Q4

REPORT INFORMATION
  Report Type: Spontaneous
  Country: US (occurrence: US)
  Receive Date: 20241230
  Receipt Date: 20241230
  Transmission Date: 20250114
  Serious: Yes (Other)
  Sender: CSL BEHRING
  Company Number: US-Vifor (International) Inc.-VIT-2024-10507

PATIENT
  Age: 46 Year
  Sex: Female
  Weight: 53.5 kg

DRUGS (2)
  1. MIRCERA [Suspect]
     Active Substance: METHOXY POLYETHYLENE GLYCOL-EPOETIN BETA
     Dosage: 75,?G,QOW
     Route: 040
     Dates: start: 20240913, end: 20241014
  2. CALCITRIOL [Concomitant]
     Active Substance: CALCITRIOL
     Dosage: UNK,UNK,UNK
     Route: 048

REACTIONS (5)
  - Drug hypersensitivity [Recovered/Resolved]
  - Unresponsive to stimuli [Recovered/Resolved]
  - Blood pressure increased [Recovered/Resolved]
  - Nausea [Recovered/Resolved]
  - Vomiting [Recovered/Resolved]

NARRATIVE: CASE EVENT DATE: 20240101
